FAERS Safety Report 6245286-6 (Version None)
Quarter: 2009Q2

REPORT INFORMATION
  Report Type: 
  Country: None (occurrence: None)
  Receive Date: 20090625
  Receipt Date: 20090617
  Transmission Date: 20091009
  Serious: Yes (Other)
  Sender: FDA-Public Use
  Company Number: DE-B.I. PHARMACEUTICALS,INC./RIDGEFIELD-2009-DE-04373DE

PATIENT

DRUGS (1)
  1. ALNA OCAS [Suspect]

REACTIONS (1)
  - CIRCULATORY COLLAPSE [None]
